FAERS Safety Report 7401572-5 (Version None)
Quarter: 2011Q2

REPORT INFORMATION
  Report Type: 
  Country: None (occurrence: None)
  Receive Date: 20110408
  Receipt Date: 20110329
  Transmission Date: 20111010
  Serious: Yes (Other)
  Sender: FDA-Public Use
  Company Number: US-BIOGENIDEC-2011BI007890

PATIENT
  Age: 53 Year
  Sex: Female
  Weight: 76 kg

DRUGS (5)
  1. AVONEX [Suspect]
     Indication: MULTIPLE SCLEROSIS
     Route: 030
     Dates: start: 20041201
  2. IV STEROIDS (NOS) [Concomitant]
     Indication: MULTIPLE SCLEROSIS
     Route: 042
  3. AVALIDE [Concomitant]
  4. AVONEX [Suspect]
     Route: 030
     Dates: start: 20080215
  5. VYTORIN [Concomitant]

REACTIONS (18)
  - PERIPHERAL COLDNESS [None]
  - PHOTOPHOBIA [None]
  - ASPARTATE AMINOTRANSFERASE INCREASED [None]
  - SPINAL CORD COMPRESSION [None]
  - HYPOAESTHESIA [None]
  - BLOOD ALKALINE PHOSPHATASE INCREASED [None]
  - OPTIC ATROPHY [None]
  - HYPERCHOLESTEROLAEMIA [None]
  - SPONDYLITIC MYELOPATHY [None]
  - MUSCULOSKELETAL DISORDER [None]
  - ALANINE AMINOTRANSFERASE INCREASED [None]
  - SURGERY [None]
  - SPINAL CORD DISORDER [None]
  - BACK PAIN [None]
  - BLOOD PRESSURE INCREASED [None]
  - AREFLEXIA [None]
  - INJECTION SITE ERYTHEMA [None]
  - BLINDNESS [None]
